FAERS Safety Report 9328734 (Version 3)
Quarter: 2019Q2

REPORT INFORMATION
  Report Type: Report from Study
  Country: US (occurrence: US)
  Receive Date: 20130604
  Receipt Date: 20190410
  Transmission Date: 20190711
  Serious: Yes (Other)
  Sender: FDA-Public Use
  Company Number: US-SANOFI-AVENTIS-2013SA011135

PATIENT
  Age: 77 Year
  Sex: Male

DRUGS (3)
  1. INSULIN GLARGINE [Suspect]
     Active Substance: INSULIN GLARGINE
     Indication: TYPE 2 DIABETES MELLITUS
     Dosage: 30 U, QD
     Dates: start: 201301
  2. BYETTA [Concomitant]
     Active Substance: EXENATIDE
     Dosage: UNK UNK, UNK
  3. INSULIN GLARGINE [Suspect]
     Active Substance: INSULIN GLARGINE
     Dosage: 14-20 UNITS, BID

REACTIONS (6)
  - Knee arthroplasty [Unknown]
  - Dyspnoea [Unknown]
  - Insulin resistance [Unknown]
  - Impaired healing [Recovered/Resolved]
  - Drug hypersensitivity [Unknown]
  - Inappropriate schedule of product administration [Unknown]
